FAERS Safety Report 25031334 (Version 2)
Quarter: 2025Q1

REPORT INFORMATION
  Report Type: Spontaneous
  Country: JP (occurrence: JP)
  Receive Date: 20250303
  Receipt Date: 20250310
  Transmission Date: 20250409
  Serious: Yes (Death, Other)
  Sender: MERCK SHARP & DOHME LLC
  Company Number: JP-009507513-2259852

PATIENT
  Age: 51 Year
  Sex: Female

DRUGS (2)
  1. KEYTRUDA [Suspect]
     Active Substance: PEMBROLIZUMAB
     Route: 041
  2. LENVATINIB [Suspect]
     Active Substance: LENVATINIB

REACTIONS (2)
  - Cardiac disorder [Fatal]
  - Adrenal insufficiency [Unknown]
